FAERS Safety Report 23328024 (Version 2)
Quarter: 2023Q4

REPORT INFORMATION
  Report Type: Spontaneous
  Country: US (occurrence: US)
  Receive Date: 20231221
  Receipt Date: 20231226
  Transmission Date: 20240110
  Serious: Yes (Other)
  Sender: FDA-Public Use
  Company Number: US-GILEAD-2023-0655772

PATIENT
  Age: 59 Year
  Sex: Female

DRUGS (1)
  1. YESCARTA [Suspect]
     Active Substance: AXICABTAGENE CILOLEUCEL
     Indication: Diffuse large B-cell lymphoma
     Dosage: UNK
     Route: 042
     Dates: start: 20231106, end: 20231106

REACTIONS (14)
  - Mental impairment [Unknown]
  - Confusional state [Recovered/Resolved]
  - Myalgia [Recovered/Resolved]
  - Pyrexia [Recovered/Resolved]
  - Feeling abnormal [Recovered/Resolved]
  - Feeling cold [Recovered/Resolved]
  - Dyspepsia [Recovered/Resolved]
  - Vitreous floaters [Recovered/Resolved]
  - Fatigue [Not Recovered/Not Resolved]
  - Middle insomnia [Not Recovered/Not Resolved]
  - Constipation [Unknown]
  - Memory impairment [Unknown]
  - Dysgraphia [Not Recovered/Not Resolved]
  - Altered visual depth perception [Unknown]

NARRATIVE: CASE EVENT DATE: 20231109
